FAERS Safety Report 20382304 (Version 1)
Quarter: 2022Q1

REPORT INFORMATION
  Report Type: Spontaneous
  Country: US (occurrence: None)
  Receive Date: 20220126
  Receipt Date: 20220126
  Transmission Date: 20220423
  Serious: Yes (Hospitalization, Disabling)
  Sender: FDA-Public Use
  Company Number: None

PATIENT
  Age: 21 Year
  Sex: Male
  Weight: 62.6 kg

DRUGS (5)
  1. EVUSHELD [Suspect]
     Active Substance: CILGAVIMAB\TIXAGEVIMAB
     Indication: Acute myeloid leukaemia
     Dosage: OTHER FREQUENCY : ONCE;?
     Route: 030
     Dates: start: 20220120, end: 20220120
  2. EVUSHELD [Suspect]
     Active Substance: CILGAVIMAB\TIXAGEVIMAB
     Indication: COVID-19 prophylaxis
  3. GILTERITINIB [Concomitant]
     Active Substance: GILTERITINIB
     Dates: start: 20211227, end: 20220123
  4. CYTARABINE [Concomitant]
     Active Substance: CYTARABINE
     Dates: start: 20211222, end: 20211227
  5. ETOPOSIDE [Concomitant]
     Active Substance: ETOPOSIDE
     Dates: start: 20211222, end: 20211227

REACTIONS (3)
  - Neuropathy peripheral [None]
  - Paralysis [None]
  - Guillain-Barre syndrome [None]

NARRATIVE: CASE EVENT DATE: 20220122
